FAERS Safety Report 7122580-8 (Version None)
Quarter: 2010Q4

REPORT INFORMATION
  Report Type: 
  Country: None (occurrence: None)
  Receive Date: 20101124
  Receipt Date: 20101116
  Transmission Date: 20110411
  Serious: Yes (Hospitalization)
  Sender: FDA-Public Use
  Company Number: PHHO2010FR17373

PATIENT
  Sex: Female
  Weight: 33 kg

DRUGS (7)
  1. STI571/CGP57148B T35717+CAPS [Suspect]
     Indication: ACUTE LYMPHOCYTIC LEUKAEMIA
     Dosage: 300 MG/M2, DAILY
     Route: 048
     Dates: start: 20090915
  2. ENDOXAN [Concomitant]
  3. ARACYTINE [Concomitant]
  4. MERCAPTOPURINE [Concomitant]
  5. METHOTREXATE [Concomitant]
  6. DEXAMETHASONE [Concomitant]
  7. VINCRISTINE [Concomitant]

REACTIONS (2)
  - FEBRILE BONE MARROW APLASIA [None]
  - STOMATITIS [None]
